FAERS Safety Report 16314337 (Version 4)
Quarter: 2020Q1

REPORT INFORMATION
  Report Type: Spontaneous
  Country: ES (occurrence: ES)
  Receive Date: 20190515
  Receipt Date: 20200130
  Transmission Date: 20200409
  Serious: Yes (Other)
  Sender: FDA-Public Use
  Company Number: ES-ELI_LILLY_AND_COMPANY-ES201802011945

PATIENT
  Age: 72 Year
  Sex: Male

DRUGS (36)
  1. INSULIN GLARGINE [Suspect]
     Active Substance: INSULIN GLARGINE
     Indication: DIABETES MELLITUS
     Dosage: UNK UNK, UNKNOWN
     Route: 065
  2. KEPPRA [Suspect]
     Active Substance: LEVETIRACETAM
     Dosage: 0.5 DOSAGE FORM, EACH MORNING
     Route: 065
  3. ATORVASTATIN [Suspect]
     Active Substance: ATORVASTATIN
     Dosage: 1 DOSAGE FORM, DAILY
  4. RISPERIDONE. [Suspect]
     Active Substance: RISPERIDONE
     Indication: BEHAVIOUR DISORDER
     Dosage: UNK UNK, UNKNOWN
     Route: 065
  5. GEMFIBROZIL. [Suspect]
     Active Substance: GEMFIBROZIL
     Indication: HYPERCHOLESTEROLAEMIA
     Dosage: 1 DOSAGE FORM, DAILY
     Route: 065
  6. LORMETAZEPAM [Suspect]
     Active Substance: LORMETAZEPAM
     Dosage: 1 DOSAGE FORM, DAILY
  7. SERTRALINE [Suspect]
     Active Substance: SERTRALINE HYDROCHLORIDE
     Dosage: 0.5 DOSAGE FORM, DAILY
  8. VALSARTAN. [Suspect]
     Active Substance: VALSARTAN
     Dosage: 1 DOSAGE FORM, DAILY
  9. LERCANIDIPINE [Suspect]
     Active Substance: LERCANIDIPINE
     Dosage: 1 DOSAGE FORM, DAILY
  10. CITICOLINE SODIUM [Suspect]
     Active Substance: CITICOLINE SODIUM
     Indication: PROPHYLAXIS
     Dosage: UNK UNK, UNKNOWN
     Route: 048
  11. CLOPIDOGREL [Suspect]
     Active Substance: CLOPIDOGREL BISULFATE
     Indication: CEREBROVASCULAR ACCIDENT PROPHYLAXIS
     Dosage: 1 DOSAGE FORM, DAILY
  12. ADIRO [Suspect]
     Active Substance: ASPIRIN
     Indication: PROPHYLAXIS
     Dosage: 1 DOSAGE FORM, DAILY
     Route: 065
  13. ADIRO [Suspect]
     Active Substance: ASPIRIN
     Indication: CEREBROVASCULAR ACCIDENT PROPHYLAXIS
     Dosage: 1 DOSAGE FORM, DAILY
  14. RISPERIDONE. [Suspect]
     Active Substance: RISPERIDONE
     Indication: EPILEPSY
     Dosage: UNK, UNKNOWN
     Route: 065
  15. SERTRALINE [Suspect]
     Active Substance: SERTRALINE HYDROCHLORIDE
     Indication: BEHAVIOUR DISORDER
     Dosage: 0.5 DOSAGE FORM, DAILY
     Route: 065
  16. KEPPRA [Suspect]
     Active Substance: LEVETIRACETAM
     Indication: PRODUCT USED FOR UNKNOWN INDICATION
     Dosage: 1 DOSAGE FORM, BID
     Route: 065
  17. KEPPRA [Suspect]
     Active Substance: LEVETIRACETAM
     Dosage: 1 DOSAGE FORM, DAILY
     Route: 065
  18. TAMSULOSIN [Suspect]
     Active Substance: TAMSULOSIN
     Indication: BENIGN PROSTATIC HYPERPLASIA
     Dosage: 1 DF, BID
     Route: 065
  19. GEMFIBROZIL. [Suspect]
     Active Substance: GEMFIBROZIL
     Dosage: 1 DOSAGE FORM, DAILY
  20. XIGDUO XR [Suspect]
     Active Substance: DAPAGLIFLOZIN PROPANEDIOL\METFORMIN HYDROCHLORIDE
     Dosage: 2 DOSAGE FORM, DAILY
  21. CITICOLINE SODIUM [Suspect]
     Active Substance: CITICOLINE SODIUM
     Indication: CEREBROVASCULAR ACCIDENT PROPHYLAXIS
  22. RANITIDINE. [Suspect]
     Active Substance: RANITIDINE
     Indication: GASTRIC MUCOSAL LESION
     Dosage: 1 DOSAGE FORM, DAILY
  23. KEPPRA [Suspect]
     Active Substance: LEVETIRACETAM
     Dosage: 0.5 DF, AM
  24. LORMETAZEPAM [Suspect]
     Active Substance: LORMETAZEPAM
     Indication: INSOMNIA
     Dosage: 1 DOSAGE FORM, DAILY
     Route: 065
  25. VALSARTAN. [Suspect]
     Active Substance: VALSARTAN
     Indication: HYPERTENSION
     Dosage: 1 DOSAGE FORM, DAILY
     Route: 065
  26. ATORVASTATIN [Suspect]
     Active Substance: ATORVASTATIN
     Indication: HYPERCHOLESTEROLAEMIA
     Dosage: 1 DOSAGE FORM, DAILY
     Route: 065
  27. CLOPIDOGREL [Suspect]
     Active Substance: CLOPIDOGREL BISULFATE
     Indication: PROPHYLAXIS
     Dosage: 1 DOSAGE FORM, DAILY
     Route: 065
  28. PERMIXON [Suspect]
     Active Substance: HERBALS\SAW PALMETTO
     Indication: BENIGN PROSTATIC HYPERPLASIA
     Dosage: 1 DOSAGE FORM, UNKNOWN
     Route: 065
  29. LINAGLIPTIN [Suspect]
     Active Substance: LINAGLIPTIN
     Indication: DIABETES MELLITUS
     Dosage: 1 DOSAGE FORM, BID
     Route: 065
  30. KEPPRA [Suspect]
     Active Substance: LEVETIRACETAM
     Dosage: 2 DOSAGE FORM, DAILY
  31. TAMSULOSIN [Suspect]
     Active Substance: TAMSULOSIN
     Dosage: 1 DF, BID (1-0-1)
  32. PERMIXON [Suspect]
     Active Substance: HERBALS\SAW PALMETTO
     Dosage: 1 DOSAGE FORM
  33. LERCANIDIPINE [Suspect]
     Active Substance: LERCANIDIPINE
     Indication: HYPERTENSION
     Dosage: 1 DOSAGE FORM, DAILY
     Route: 065
  34. RANITIDINE. [Suspect]
     Active Substance: RANITIDINE
     Indication: PROPHYLAXIS
     Dosage: 1 DOSAGE FORM, DAILY
     Route: 065
  35. XIGDUO XR [Suspect]
     Active Substance: DAPAGLIFLOZIN PROPANEDIOL\METFORMIN HYDROCHLORIDE
     Indication: DIABETES MELLITUS
     Dosage: 1 DOSAGE FORM, BID
     Route: 065
  36. SERTRALINE [Suspect]
     Active Substance: SERTRALINE HYDROCHLORIDE
     Dosage: 0.5 DOSAGE FORM, DAILY
     Route: 065

REACTIONS (5)
  - Hypertension [Recovered/Resolved]
  - Hyperglycaemia [Recovered/Resolved with Sequelae]
  - Blood cholesterol increased [Recovered/Resolved]
  - Fatigue [Unknown]
  - Blood triglycerides increased [Recovered/Resolved]
